FAERS Safety Report 18984240 (Version 3)
Quarter: 2021Q2

REPORT INFORMATION
  Report Type: Spontaneous
  Country: HR (occurrence: HR)
  Receive Date: 20210309
  Receipt Date: 20210626
  Transmission Date: 20210717
  Serious: Yes (Other)
  Sender: FDA-Public Use
  Company Number: HR-B.I. PHARMACEUTICALS,INC./RIDGEFIELD-2021-BI-086784

PATIENT
  Age: 62 Year
  Sex: Male

DRUGS (2)
  1. VARGATEF [Suspect]
     Active Substance: NINTEDANIB
     Indication: LUNG ADENOCARCINOMA
     Dosage: 6 CYCLES
     Route: 065
     Dates: start: 201910
  2. DOTAXEL [DOCETAXEL] [Concomitant]
     Indication: LUNG ADENOCARCINOMA
     Dosage: 6 CYCLES
     Route: 065

REACTIONS (4)
  - Liver disorder [Unknown]
  - Renal pain [Unknown]
  - Ascites [Recovered/Resolved]
  - Ill-defined disorder [Unknown]

NARRATIVE: CASE EVENT DATE: 202012
